FAERS Safety Report 4947228-X (Version None)
Quarter: 2006Q1

REPORT INFORMATION
  Report Type: 
  Country: None (occurrence: None)
  Receive Date: 20060313
  Receipt Date: 20060227
  Transmission Date: 20060701
  Serious: Yes (Other)
  Sender: FDA-Public Use
  Company Number: HQWYE085201MAR06

PATIENT
  Age: 61 Year
  Sex: Female
  Weight: 46.76 kg

DRUGS (4)
  1. PREMARIN [Suspect]
     Indication: MENOPAUSAL SYMPTOMS
  2. MEDROXYPROGESTERONE [Suspect]
     Indication: MENOPAUSAL SYMPTOMS
  3. PROVERA [Suspect]
  4. PROVERA [Suspect]

REACTIONS (7)
  - BREAST CANCER RECURRENT [None]
  - BREAST MICROCALCIFICATION [None]
  - CARDIAC DISORDER [None]
  - HYPOAESTHESIA [None]
  - OESTROGEN RECEPTOR ASSAY POSITIVE [None]
  - PROGESTERONE RECEPTOR ASSAY POSITIVE [None]
  - SCAR [None]
